FAERS Safety Report 5447823-8 (Version None)
Quarter: 2007Q3

REPORT INFORMATION
  Report Type: 
  Country: None (occurrence: None)
  Receive Date: 20070910
  Receipt Date: 20070829
  Transmission Date: 20080115
  Serious: Yes (Other)
  Sender: FDA-Public Use
  Company Number: US-PFIZER INC-2007073002

PATIENT
  Sex: Female

DRUGS (5)
  1. CHANTIX [Suspect]
     Indication: SMOKING CESSATION THERAPY
     Dates: start: 20070801, end: 20070827
  2. ALL OTHER THERAPEUTIC PRODUCTS [Suspect]
     Indication: SURGERY
     Dates: start: 20070827, end: 20070827
  3. EFFEXOR [Concomitant]
     Indication: DEPRESSION
  4. VITAMINS [Concomitant]
  5. ALL OTHER THERAPEUTIC PRODUCTS [Concomitant]

REACTIONS (2)
  - FATIGUE [None]
  - SURGERY [None]
